FAERS Safety Report 11815581 (Version 1)
Quarter: 2015Q4

REPORT INFORMATION
  Report Type: Spontaneous
  Country: JP (occurrence: JP)
  Receive Date: 20151209
  Receipt Date: 20151209
  Transmission Date: 20160305
  Serious: Yes (Other)
  Sender: FDA-Public Use
  Company Number: JP-JNJFOC-20151206365

PATIENT

DRUGS (3)
  1. PEGYLATED INTERFERON NOS [Concomitant]
     Active Substance: PEGINTERFERON ALFA-2A OR PEGINTERFERON ALFA-2B OR PEGINTERFERON BETA-1A OR PEGINTERFERON LAMBDA-1A
     Indication: CHRONIC HEPATITIS C
     Dosage: DOSE WAS GIVEN IN ACCORDANCE WITH THE WEIGHT AT BASELINE.
     Route: 065
  2. SOVRIAD [Suspect]
     Active Substance: SIMEPREVIR
     Indication: CHRONIC HEPATITIS C
     Dosage: DOSE WAS GIVEN IN ACCORDANCE WITH THE WEIGHT AT BASELINE.
     Route: 065
  3. RIBAVIRIN. [Concomitant]
     Active Substance: RIBAVIRIN
     Indication: CHRONIC HEPATITIS C
     Dosage: DOSE WAS GIVEN IN ACCORDANCE WITH THE WEIGHT AT BASELINE.
     Route: 065

REACTIONS (2)
  - Alanine aminotransferase increased [Unknown]
  - Hepatitis C [Unknown]
